FAERS Safety Report 25497816 (Version 4)
Quarter: 2025Q4

REPORT INFORMATION
  Report Type: Spontaneous
  Country: EU (occurrence: EU)
  Receive Date: 20250701
  Receipt Date: 20251016
  Transmission Date: 20260117
  Serious: Yes (Other)
  Sender: SANDOZ
  Company Number: EU-002147023-NVSC2019PL036500

PATIENT
  Age: 2 Year
  Sex: Female

DRUGS (30)
  1. ACYCLOVIR [Suspect]
     Active Substance: ACYCLOVIR
     Indication: Antiviral prophylaxis
     Dosage: UNK
     Route: 042
  2. ALKERAN [Suspect]
     Active Substance: MELPHALAN
     Indication: Drug therapy
     Dosage: 4 MG/KG, QD (ON DAY -1 BEFORE TRANSPLANT)
     Route: 065
  3. ALKERAN [Suspect]
     Active Substance: MELPHALAN
     Indication: Bone marrow conditioning regimen
  4. THYMOCYTE IMMUNE GLOBULIN NOS [Suspect]
     Active Substance: THYMOCYTE IMMUNE GLOBULIN NOS
     Indication: B precursor type acute leukaemia
     Dosage: UNK
     Route: 065
  5. THYMOCYTE IMMUNE GLOBULIN NOS [Suspect]
     Active Substance: THYMOCYTE IMMUNE GLOBULIN NOS
     Indication: Bone marrow conditioning regimen
  6. BUSULFAN [Suspect]
     Active Substance: BUSULFAN
     Indication: B precursor type acute leukaemia
     Dosage: FROM THE 5TH DAY AFTER HAPLOSCT
     Route: 065
  7. BUSULFAN [Suspect]
     Active Substance: BUSULFAN
     Indication: Bone marrow conditioning regimen
  8. CYCLOPHOSPHAMIDE [Suspect]
     Active Substance: CYCLOPHOSPHAMIDE
     Indication: B precursor type acute leukaemia
     Dosage: 14.5 MG/KG;QD ON DAYS -6 AND -5   MG/KG
     Route: 065
  9. CYCLOPHOSPHAMIDE [Suspect]
     Active Substance: CYCLOPHOSPHAMIDE
     Indication: Bone marrow conditioning regimen
     Dosage: 50 MG/KG;QD ON DAY +3 AND +4 AFTER TRANSPLANT MG/KG
     Route: 065
  10. CYCLOPHOSPHAMIDE [Suspect]
     Active Substance: CYCLOPHOSPHAMIDE
     Indication: Bone marrow conditioning regimen
  11. CYCLOPHOSPHAMIDE [Suspect]
     Active Substance: CYCLOPHOSPHAMIDE
     Indication: Drug therapy
  12. CYCLOPHOSPHAMIDE [Suspect]
     Active Substance: CYCLOPHOSPHAMIDE
     Indication: Immunosuppression
  13. CYCLOPHOSPHAMIDE [Suspect]
     Active Substance: CYCLOPHOSPHAMIDE
     Indication: Prophylaxis against graft versus host disease
  14. CYCLOSPORINE [Suspect]
     Active Substance: CYCLOSPORINE
     Indication: Immunosuppression
     Dosage: FROM THE 5TH DAY AFTER HAPLOSCT
     Route: 065
  15. CYCLOSPORINE [Suspect]
     Active Substance: CYCLOSPORINE
     Indication: Prophylaxis against graft versus host disease
  16. ETOPOSIDE [Suspect]
     Active Substance: ETOPOSIDE
     Indication: B precursor type acute leukaemia
     Dosage: FROM THE 5TH DAY AFTER HAPLOSCT
     Route: 065
  17. ETOPOSIDE [Suspect]
     Active Substance: ETOPOSIDE
     Indication: Bone marrow conditioning regimen
  18. FLUDARABINE PHOSPHATE [Suspect]
     Active Substance: FLUDARABINE PHOSPHATE
     Indication: Bone marrow conditioning regimen
     Dosage: 30 MG/M2; QD ON DAYS -6 TO -2 BEFORE TRANSPLANT MG/M2
     Route: 065
  19. FLUDARABINE PHOSPHATE [Suspect]
     Active Substance: FLUDARABINE PHOSPHATE
     Indication: B precursor type acute leukaemia
  20. FLUDARABINE PHOSPHATE [Suspect]
     Active Substance: FLUDARABINE PHOSPHATE
     Indication: Bone marrow conditioning regimen
  21. FLUDARABINE PHOSPHATE [Suspect]
     Active Substance: FLUDARABINE PHOSPHATE
     Indication: Drug therapy
  22. MYCOPHENOLATE MOFETIL [Suspect]
     Active Substance: MYCOPHENOLATE MOFETIL
     Indication: Prophylaxis against graft versus host disease
     Dosage: FROM THE 5TH DAY AFTER HAPLOSCT
     Route: 065
  23. MYCOPHENOLATE MOFETIL [Suspect]
     Active Substance: MYCOPHENOLATE MOFETIL
     Indication: Immunosuppression
  24. THIOTEPA [Suspect]
     Active Substance: THIOTEPA
     Indication: B precursor type acute leukaemia
     Dosage: UNK
     Route: 065
  25. THIOTEPA [Suspect]
     Active Substance: THIOTEPA
     Indication: Bone marrow conditioning regimen
  26. TREOSULFAN [Suspect]
     Active Substance: TREOSULFAN
     Indication: B precursor type acute leukaemia
     Dosage: UNK
     Route: 065
  27. TREOSULFAN [Suspect]
     Active Substance: TREOSULFAN
     Indication: Bone marrow conditioning regimen
  28. SULFAMETHOXAZOLE\TRIMETHOPRIM [Suspect]
     Active Substance: SULFAMETHOXAZOLE\TRIMETHOPRIM
     Indication: Antibiotic prophylaxis
     Dosage: UNK
     Route: 065
  29. SULFAMETHOXAZOLE\TRIMETHOPRIM [Suspect]
     Active Substance: SULFAMETHOXAZOLE\TRIMETHOPRIM
     Indication: Antibiotic prophylaxis
  30. GRANULOCYTE COLONY-STIMULATING FACTOR NOS [Concomitant]
     Active Substance: GRANULOCYTE COLONY-STIMULATING FACTOR NOS
     Indication: Product used for unknown indication
     Dosage: 5 UG/KG, QD; AT DAY 5 AFTER HAPLOSCT
     Route: 065

REACTIONS (7)
  - Acute lymphocytic leukaemia recurrent [Unknown]
  - Mucosal inflammation [Recovered/Resolved]
  - Opportunistic infection [Recovered/Resolved]
  - Febrile neutropenia [Recovered/Resolved]
  - Mucosal inflammation [Unknown]
  - Product use in unapproved indication [Unknown]
  - Off label use [Unknown]
